FAERS Safety Report 5015298-9 (Version None)
Quarter: 2006Q2

REPORT INFORMATION
  Report Type: 
  Country: None (occurrence: None)
  Receive Date: 20060601
  Receipt Date: 20060523
  Transmission Date: 20061013
  Serious: Yes (Other)
  Sender: FDA-Public Use
  Company Number: US-KINGPHARMUSA00001-K200600674

PATIENT
  Age: 74 Year
  Sex: Male

DRUGS (3)
  1. ALTACE [Suspect]
     Route: 048
  2. FELODIPINE [Suspect]
     Route: 048
  3. DIOVAN [Concomitant]

REACTIONS (4)
  - ASTHENIA [None]
  - BLOOD CREATINE PHOSPHOKINASE INCREASED [None]
  - POLYMYOSITIS [None]
  - WEIGHT DECREASED [None]
